FAERS Safety Report 9973675 (Version 2)
Quarter: 2014Q2

REPORT INFORMATION
  Report Type: Spontaneous
  Country: US (occurrence: US)
  Receive Date: 20140306
  Receipt Date: 20140418
  Transmission Date: 20141212
  Serious: Yes (Other)
  Sender: FDA-Public Use
  Company Number: US-TEVA-466109USA

PATIENT
  Age: 36 Year
  Sex: Male

DRUGS (9)
  1. ACTIQ [Suspect]
     Indication: CROHN^S DISEASE
     Dosage: QUANTITY 15 FOR A 10 DAY SUPPLY
     Route: 048
     Dates: start: 20140217, end: 2014
  2. ACTIQ [Suspect]
     Indication: PAIN
     Dosage: 1200 MICROGRAM DAILY; QUANTITY 30 BEFORE EACH MEAL
     Route: 060
  3. FENTANYL [Concomitant]
     Indication: PAIN
     Route: 062
  4. CIMZIA [Concomitant]
     Indication: CROHN^S DISEASE
  5. METHOTREXATE [Concomitant]
     Indication: CROHN^S DISEASE
  6. FOLIC ACID [Concomitant]
     Indication: CROHN^S DISEASE
  7. PRILOSEC [Concomitant]
  8. ZOFRAN [Concomitant]
     Indication: NAUSEA
  9. TOTAL PARENTERAL NUTRITION (TPN) [Concomitant]

REACTIONS (6)
  - Crohn^s disease [Not Recovered/Not Resolved]
  - Pain [Not Recovered/Not Resolved]
  - Aphagia [Recovering/Resolving]
  - Cachexia [Not Recovered/Not Resolved]
  - Nausea [Not Recovered/Not Resolved]
  - Off label use [Unknown]
